FAERS Safety Report 17113849 (Version 1)
Quarter: 2019Q4

REPORT INFORMATION
  Report Type: Spontaneous
  Country: US (occurrence: US)
  Receive Date: 20191205
  Receipt Date: 20191205
  Transmission Date: 20200122
  Serious: No
  Sender: FDA-Public Use
  Company Number: US-TEVA-2019-US-1148369

PATIENT
  Sex: Female

DRUGS (1)
  1. AMPHETAMINE W/DEXTROAMPHETAMINE [Suspect]
     Active Substance: AMPHETAMINE SULFATE\DEXTROAMPHETAMINE
     Indication: ATTENTION DEFICIT/HYPERACTIVITY DISORDER
     Dosage: 30 MG
     Route: 065
     Dates: start: 2019

REACTIONS (8)
  - Nausea [Unknown]
  - Product quality issue [Unknown]
  - Neck pain [Unknown]
  - Fatigue [Unknown]
  - Abdominal discomfort [Unknown]
  - Back pain [Unknown]
  - Flatulence [Unknown]
  - Headache [Unknown]
